FAERS Safety Report 4929121-1 (Version None)
Quarter: 2006Q1

REPORT INFORMATION
  Report Type: 
  Country: None (occurrence: None)
  Receive Date: 20060301
  Receipt Date: 20060221
  Transmission Date: 20060701
  Serious: Yes (Hospitalization)
  Sender: FDA-Public Use
  Company Number: NO-MERCK-0602NOR00020

PATIENT
  Age: 56 Year
  Sex: Male

DRUGS (2)
  1. VIOXX [Suspect]
     Indication: OSTEOARTHRITIS
     Route: 048
     Dates: start: 20000101, end: 20040101
  2. IBUPROFEN [Concomitant]
     Indication: OSTEOARTHRITIS
     Route: 065

REACTIONS (2)
  - ANGINA PECTORIS [None]
  - SILENT MYOCARDIAL INFARCTION [None]
